FAERS Safety Report 4931845-7 (Version None)
Quarter: 2006Q1

REPORT INFORMATION
  Report Type: 
  Country: None (occurrence: None)
  Receive Date: 20060303
  Receipt Date: 20041123
  Transmission Date: 20060701
  Serious: Yes (Hospitalization)
  Sender: FDA-Public Use
  Company Number: FR-ABBOTT-04P-056-0281429-00

PATIENT
  Age: 29 Year
  Sex: Female
  Weight: 53 kg

DRUGS (6)
  1. HUMIRA [Suspect]
     Indication: DRUG USE FOR UNKNOWN INDICATION
     Route: 058
     Dates: end: 20040720
  2. HUMIRA [Suspect]
  3. AZATHIOPRINE [Suspect]
     Indication: DRUG USE FOR UNKNOWN INDICATION
     Dates: end: 20040730
  4. AZATHIOPRINE [Suspect]
     Dates: start: 20040801
  5. AZATHIOPRINE [Suspect]
  6. CORTICOIDS [Concomitant]
     Indication: DRUG USE FOR UNKNOWN INDICATION
     Dates: end: 20040730

REACTIONS (7)
  - ASTHENIA [None]
  - BACK PAIN [None]
  - CROHN'S DISEASE [None]
  - DISEASE RECURRENCE [None]
  - LIVER FUNCTION TEST ABNORMAL [None]
  - THROMBOCYTOPENIA [None]
  - VARICELLA [None]
